FAERS Safety Report 9175839 (Version 1)
Quarter: 2013Q1

REPORT INFORMATION
  Report Type: Spontaneous
  Country: US (occurrence: US)
  Receive Date: 20130320
  Receipt Date: 20130320
  Transmission Date: 20140127
  Serious: Yes (Other)
  Sender: FDA-Public Use
  Company Number: US-ABBOTT-13P-163-1062654-00

PATIENT
  Sex: Male

DRUGS (1)
  1. HUMIRA [Suspect]
     Indication: CROHN^S DISEASE
     Dates: start: 201001

REACTIONS (7)
  - Crohn^s disease [Not Recovered/Not Resolved]
  - Anal fistula [Not Recovered/Not Resolved]
  - Abscess [Unknown]
  - Abdominal pain [Not Recovered/Not Resolved]
  - Skin fissures [Not Recovered/Not Resolved]
  - Infection [Not Recovered/Not Resolved]
  - Injection site erythema [Unknown]
